FAERS Safety Report 4893358-0 (Version None)
Quarter: 2006Q1

REPORT INFORMATION
  Report Type: 
  Country: None (occurrence: None)
  Receive Date: 20060127
  Receipt Date: 20060119
  Transmission Date: 20060701
  Serious: Yes (Other)
  Sender: FDA-Public Use
  Company Number: US-ABBOTT-06P-163-0322838-00

PATIENT
  Sex: Female
  Weight: 45.4 kg

DRUGS (3)
  1. DEPAKOTE [Suspect]
     Indication: CONVULSION
     Dates: start: 20050901
  2. DEPAKOTE [Suspect]
     Indication: EPILEPSY
  3. ETHOSUXIMIDE [Concomitant]
     Indication: CONVULSION
     Route: 048
     Dates: start: 20050101

REACTIONS (3)
  - ANTICONVULSANT DRUG LEVEL BELOW THERAPEUTIC [None]
  - CONVULSION [None]
  - DRUG INEFFECTIVE [None]
